FAERS Safety Report 16168921 (Version 1)
Quarter: 2019Q2

REPORT INFORMATION
  Report Type: Spontaneous
  Country: US (occurrence: US)
  Receive Date: 20190408
  Receipt Date: 20190408
  Transmission Date: 20190711
  Serious: No
  Sender: FDA-Public Use
  Company Number: US-ASTRAZENECA-2019SE41515

PATIENT
  Age: 49 Year
  Sex: Male
  Weight: 143.8 kg

DRUGS (1)
  1. BYDUREON [Suspect]
     Active Substance: EXENATIDE
     Indication: TYPE 2 DIABETES MELLITUS
     Route: 058
     Dates: start: 2019

REACTIONS (6)
  - Injection site pruritus [Not Recovered/Not Resolved]
  - Insomnia [Recovered/Resolved]
  - Decreased appetite [Not Recovered/Not Resolved]
  - Injection site erythema [Not Recovered/Not Resolved]
  - Heart rate increased [Recovered/Resolved]
  - Injection site mass [Not Recovered/Not Resolved]

NARRATIVE: CASE EVENT DATE: 2019
